FAERS Safety Report 10520007 (Version 1)
Quarter: 2014Q4

REPORT INFORMATION
  Report Type: Spontaneous
  Country: IN (occurrence: IN)
  Receive Date: 20141015
  Receipt Date: 20141015
  Transmission Date: 20150528
  Serious: Yes (Other)
  Sender: FDA-Public Use
  Company Number: PHHY2014IN131366

PATIENT
  Age: 32 Year
  Sex: Male

DRUGS (1)
  1. QUETIAPINE [Suspect]
     Active Substance: QUETIAPINE
     Dosage: 300 MG, UNK
     Route: 065

REACTIONS (11)
  - Memory impairment [Unknown]
  - Irritability [Unknown]
  - Drug withdrawal syndrome [Unknown]
  - Insomnia [Unknown]
  - Drug dependence [Unknown]
  - Frustration [Unknown]
  - Feeling abnormal [Unknown]
  - Sleep disorder [Unknown]
  - Drug abuse [Unknown]
  - Impulsive behaviour [Unknown]
  - Abnormal behaviour [Unknown]
